FAERS Safety Report 8798573 (Version 2)
Quarter: 2012Q4

REPORT INFORMATION
  Report Type: Spontaneous
  Country: US (occurrence: None)
  Receive Date: 20120914
  Receipt Date: 20120926
  Transmission Date: 20130627
  Serious: Yes (Hospitalization)
  Sender: FDA-Public Use
  Company Number: 2012AP002918

PATIENT
  Age: 46 Year
  Sex: Female

DRUGS (3)
  1. TRAZODONE HYDROCHLORIDE [Suspect]
  2. OXYCODONE [Suspect]
     Indication: DRUG OVERDOSE
  3. AMITRIPTYLINE [Suspect]

REACTIONS (8)
  - Unresponsive to stimuli [None]
  - Anoxia [None]
  - Leukoencephalopathy [None]
  - Overdose [None]
  - Amnesia [None]
  - Respiratory rate decreased [None]
  - Miosis [None]
  - Speech disorder [None]
